FAERS Safety Report 11382538 (Version 5)
Quarter: 2016Q1

REPORT INFORMATION
  Report Type: Spontaneous
  Country: CA (occurrence: CA)
  Receive Date: 20150814
  Receipt Date: 20160217
  Transmission Date: 20160525
  Serious: Yes (Hospitalization)
  Sender: FDA-Public Use
  Company Number: CA-BRACCO-000993

PATIENT
  Age: 46 Year
  Sex: Male

DRUGS (3)
  1. MARCAINE [Concomitant]
     Active Substance: BUPIVACAINE HYDROCHLORIDE
     Dosage: INJECTED INTO SUBACROMIAL BURSA
     Dates: start: 20150707, end: 20150707
  2. ISOVUE 300 [Suspect]
     Active Substance: IOPAMIDOL
     Indication: DIAGNOSTIC PROCEDURE
     Dosage: INJECTED INTO SUBACROMIAL BURSA
     Route: 014
     Dates: start: 20150707, end: 20150707
  3. TRIAMCINOLONE ACETONIDE. [Concomitant]
     Active Substance: TRIAMCINOLONE ACETONIDE
     Dosage: INJECTED INTO SUBACROMIAL BURSA
     Dates: start: 20150707, end: 20150707

REACTIONS (1)
  - Arthritis bacterial [Recovering/Resolving]

NARRATIVE: CASE EVENT DATE: 20150720
